FAERS Safety Report 8295052-5 (Version None)
Quarter: 2012Q2

REPORT INFORMATION
  Report Type: 
  Country: None (occurrence: None)
  Receive Date: 20120418
  Receipt Date: 20120409
  Transmission Date: 20120825
  Serious: Yes (Hospitalization)
  Sender: FDA-Public Use
  Company Number: US-ASTRAZENECA-2008UW28509

PATIENT
  Age: 43 Year
  Sex: Female

DRUGS (5)
  1. FAMOTIDINE [Concomitant]
  2. OMEPRAZOLE [Suspect]
     Route: 048
  3. NEXIUM [Suspect]
     Indication: GASTROOESOPHAGEAL REFLUX DISEASE
     Route: 048
     Dates: start: 20020710, end: 20081101
  4. PROTONIX [Concomitant]
  5. NEXIUM [Suspect]
     Route: 048

REACTIONS (6)
  - DRUG DOSE OMISSION [None]
  - HIATUS HERNIA [None]
  - AUTOIMMUNE THYROIDITIS [None]
  - HYPERTHYROIDISM [None]
  - OESOPHAGEAL SPASM [None]
  - DRUG INEFFECTIVE [None]
